FAERS Safety Report 5398625-2 (Version None)
Quarter: 2007Q3

REPORT INFORMATION
  Report Type: 
  Country: None (occurrence: None)
  Receive Date: 20070726
  Receipt Date: 20060602
  Transmission Date: 20080115
  Serious: No
  Sender: FDA-Public Use
  Company Number: US-AMGEN-KDL181951

PATIENT
  Sex: Female

DRUGS (10)
  1. PROCRIT [Suspect]
     Indication: MYELODYSPLASTIC SYNDROME
     Dates: start: 20010101
  2. INDERAL [Concomitant]
     Route: 048
  3. FOLIC ACID [Concomitant]
     Route: 048
  4. LASIX [Concomitant]
  5. K-DUR 10 [Concomitant]
     Route: 048
  6. NEXIUM [Concomitant]
  7. MIRALAX [Concomitant]
  8. REQUIP [Concomitant]
  9. PEPCID [Concomitant]
     Route: 048
  10. ACTONEL [Concomitant]

REACTIONS (2)
  - CHILLS [None]
  - NAUSEA [None]
